FAERS Safety Report 6647486-X (Version None)
Quarter: 2010Q1

REPORT INFORMATION
  Report Type: 
  Country: None (occurrence: None)
  Receive Date: 20100323
  Receipt Date: 20100311
  Transmission Date: 20100710
  Serious: Yes (Death)
  Sender: FDA-Public Use
  Company Number: GB-GENENTECH-299239

PATIENT
  Sex: Female

DRUGS (1)
  1. LUCENTIS [Suspect]
     Indication: MACULAR DEGENERATION
     Dosage: 5 MG, UNK
     Route: 031
     Dates: start: 20090807

REACTIONS (1)
  - CEREBROVASCULAR ACCIDENT [None]
